FAERS Safety Report 16725407 (Version 2)
Quarter: 2019Q4

REPORT INFORMATION
  Report Type: Spontaneous
  Country: BR (occurrence: BR)
  Receive Date: 20190821
  Receipt Date: 20191114
  Transmission Date: 20200122
  Serious: Yes (Other)
  Sender: FDA-Public Use
  Company Number: BR-ASTRAZENECA-2019SF17253

PATIENT
  Age: 57 Year
  Sex: Female

DRUGS (2)
  1. TEMODAL [Concomitant]
     Active Substance: TEMOZOLOMIDE
     Dosage: UNK
  2. LYNPARZA [Suspect]
     Active Substance: OLAPARIB
     Route: 048

REACTIONS (2)
  - Hepatic neoplasm [Not Recovered/Not Resolved]
  - Peritoneal neoplasm [Not Recovered/Not Resolved]
